FAERS Safety Report 8885936 (Version 1)
Quarter: 2012Q4

REPORT INFORMATION
  Report Type: 
  Country: ES (occurrence: ES)
  Receive Date: 20121105
  Receipt Date: 20121105
  Transmission Date: 20130627
  Serious: Yes (Life-Threatening, Hospitalization, Other)
  Sender: FDA-Public Use
  Company Number: PHHO2010ES09918

PATIENT
  Age: 81 Year
  Sex: Male
  Weight: 77.5 kg

DRUGS (5)
  1. ALISKIREN [Suspect]
     Indication: CARDIAC FAILURE ACUTE
     Route: 048
     Dates: start: 20100623
  2. RAMIPRIL [Suspect]
     Dosage: 2.5 mg, QD
     Route: 048
     Dates: start: 20090704, end: 20100813
  3. CARVEDILOL [Suspect]
     Dosage: 3.12 mg, BID
     Route: 048
     Dates: start: 20090704, end: 20100813
  4. SEGURIL [Suspect]
  5. FUROSEMIDE [Concomitant]
     Indication: CARDIAC FAILURE CHRONIC
     Dosage: 40 mg, TID
     Route: 048
     Dates: start: 20090704, end: 20100813

REACTIONS (21)
  - Renal failure chronic [Unknown]
  - Renal impairment [Unknown]
  - Hypotension [Unknown]
  - Acute pulmonary oedema [Recovered/Resolved]
  - Hyperhidrosis [Recovered/Resolved]
  - Tachypnoea [Recovered/Resolved]
  - Rales [Recovered/Resolved]
  - Cardiac failure chronic [Recovering/Resolving]
  - Bundle branch block left [Recovering/Resolving]
  - Dyspnoea [Recovered/Resolved]
  - Chest pain [Recovered/Resolved]
  - Blood pressure increased [Recovered/Resolved]
  - Venous pressure jugular increased [Recovered/Resolved]
  - Oedema peripheral [Recovered/Resolved]
  - Tachycardia [Not Recovered/Not Resolved]
  - Ventricular extrasystoles [Recovered/Resolved]
  - Cardiomegaly [Not Recovered/Not Resolved]
  - Fatigue [Not Recovered/Not Resolved]
  - Asthenia [Not Recovered/Not Resolved]
  - Disease progression [Recovered/Resolved]
  - Acute coronary syndrome [Recovered/Resolved]
